FAERS Safety Report 4518211-3 (Version None)
Quarter: 2004Q4

REPORT INFORMATION
  Report Type: 
  Country: None (occurrence: None)
  Receive Date: 20041130
  Receipt Date: 20041116
  Transmission Date: 20050328
  Serious: Yes (Hospitalization)
  Sender: FDA-Public Use
  Company Number: US_0411108221

PATIENT
  Age: 72 Year
  Sex: Female

DRUGS (15)
  1. EVISTA [Suspect]
     Indication: OSTEOPOROSIS
     Dates: start: 20000101, end: 20040503
  2. STUDY MEDICATION [Concomitant]
  3. DONEPEZIL HCL [Concomitant]
  4. LISINOPRIL [Concomitant]
  5. AMLODIPINE [Concomitant]
  6. VITAMIN C [Concomitant]
  7. MULTIVITAMINS NOS (MULTIVITAMINS NOS) [Concomitant]
  8. ASPIRIN [Concomitant]
  9. CALCIUM [Concomitant]
  10. VITAMIN E [Concomitant]
  11. SERTRALINE HYDROCHLORIDE [Concomitant]
  12. ESCITALOPRAM [Concomitant]
  13. QUINAPRIL HCL [Concomitant]
  14. ARIPIPRAZOLE [Concomitant]
  15. RISPERIDONE [Concomitant]

REACTIONS (2)
  - DIZZINESS [None]
  - OVERDOSE [None]
